FAERS Safety Report 21967678 (Version 1)
Quarter: 2023Q1

REPORT INFORMATION
  Report Type: Spontaneous
  Country: FR (occurrence: None)
  Receive Date: 20230208
  Receipt Date: 20230208
  Transmission Date: 20230418
  Serious: Yes (Hospitalization)
  Sender: FDA-Public Use
  Company Number: 2023A025329

PATIENT
  Age: 67 Year
  Sex: Male

DRUGS (8)
  1. TICAGRELOR [Suspect]
     Active Substance: TICAGRELOR
     Indication: Ischaemic heart disease prophylaxis
     Route: 048
     Dates: start: 202201, end: 20220404
  2. KARDEGIC [Suspect]
     Active Substance: ASPIRIN DL-LYSINE
     Indication: Ischaemic heart disease prophylaxis
     Dates: start: 202201, end: 20220404
  3. VERAPAMIL HYDROCHLORIDE [Concomitant]
     Active Substance: VERAPAMIL HYDROCHLORIDE
     Indication: Ischaemic heart disease prophylaxis
     Dates: end: 20220404
  4. VERAPAMIL HYDROCHLORIDE [Concomitant]
     Active Substance: VERAPAMIL HYDROCHLORIDE
     Indication: Hypertension
     Dates: end: 20220404
  5. INDAPAMIDE\PERINDOPRIL [Concomitant]
     Active Substance: INDAPAMIDE\PERINDOPRIL
     Indication: Hypertension
     Dosage: 1CP DE 4MG/1,25MG PAR JOUR
     Dates: end: 20220404
  6. LANSOPRAZOLE [Concomitant]
     Active Substance: LANSOPRAZOLE
     Dosage: 15.0MG UNKNOWN
  7. NICORANDIL [Concomitant]
     Active Substance: NICORANDIL
     Dates: end: 20220404
  8. ATORVASTATIN [Concomitant]
     Active Substance: ATORVASTATIN
     Indication: Hypercholesterolaemia
     Dosage: 20.0MG UNKNOWN

REACTIONS (3)
  - General physical health deterioration [Recovered/Resolved]
  - Dyspnoea [Recovered/Resolved]
  - Melaena [Recovered/Resolved]

NARRATIVE: CASE EVENT DATE: 20220402
